FAERS Safety Report 10215031 (Version 1)
Quarter: 2014Q2

REPORT INFORMATION
  Report Type: Spontaneous
  Country: RS (occurrence: RS)
  Receive Date: 20140603
  Receipt Date: 20140603
  Transmission Date: 20141212
  Serious: Yes (Life-Threatening, Hospitalization)
  Sender: FDA-Public Use
  Company Number: RS-PFIZER INC-2014150637

PATIENT
  Age: 75 Year
  Sex: Male

DRUGS (4)
  1. TRITACE [Suspect]
     Indication: ESSENTIAL HYPERTENSION
     Dosage: 10 MG, DAILY
     Route: 048
     Dates: start: 2008, end: 20140518
  2. AMILORIDE HCL W/HYDROCHLOROTHIAZIDE [Suspect]
     Indication: ESSENTIAL HYPERTENSION
     Dosage: 1 DF, DAILY
     Route: 048
     Dates: start: 2008, end: 20140518
  3. LOTAR [Suspect]
     Indication: ESSENTIAL HYPERTENSION
     Dosage: 50 MG, DAILY
     Route: 048
     Dates: start: 2011, end: 20140518
  4. FUROSEMID [Concomitant]
     Dosage: UNK

REACTIONS (5)
  - Circulatory collapse [Recovering/Resolving]
  - Bradycardia [Recovering/Resolving]
  - Blood potassium increased [Recovering/Resolving]
  - Hypotension [Recovering/Resolving]
  - Blood creatinine increased [Recovering/Resolving]
